FAERS Safety Report 17721762 (Version 2)
Quarter: 2021Q4

REPORT INFORMATION
  Report Type: Report from Study
  Country: JP (occurrence: JP)
  Receive Date: 20200429
  Receipt Date: 20211014
  Transmission Date: 20220303
  Serious: Yes (Other)
  Sender: FDA-Public Use
  Company Number: JP-TEVA-2020-JP-1230301

PATIENT
  Age: 74 Year
  Sex: Female
  Weight: 59 kg

DRUGS (6)
  1. RASAGILINE MESYLATE [Suspect]
     Active Substance: RASAGILINE MESYLATE
     Indication: Parkinson^s disease
     Dosage: .5 MILLIGRAM DAILY;
     Route: 065
     Dates: start: 20190517
  2. RASAGILINE MESYLATE [Suspect]
     Active Substance: RASAGILINE MESYLATE
     Dosage: 1 MILLIGRAM DAILY;
     Route: 065
  3. RASAGILINE MESYLATE [Suspect]
     Active Substance: RASAGILINE MESYLATE
     Dosage: .5 MILLIGRAM DAILY;
     Route: 065
     Dates: end: 20200318
  4. LEVODOPA [Concomitant]
     Active Substance: LEVODOPA
     Dosage: ONGOING
     Route: 065
  5. NEUPRO [Concomitant]
     Active Substance: ROTIGOTINE
     Dosage: ONGOING
     Route: 065
  6. SENNOSIDES A AND B [Concomitant]
     Active Substance: SENNOSIDES A AND B
     Route: 065

REACTIONS (1)
  - Hallucination, visual [Recovering/Resolving]

NARRATIVE: CASE EVENT DATE: 20190601
